APPROVED DRUG PRODUCT: RISPERIDONE
Active Ingredient: RISPERIDONE
Strength: 4MG
Dosage Form/Route: TABLET;ORAL
Application: A078036 | Product #006
Applicant: SUN PHARMACEUTICAL INDUSTRIES INC
Approved: Mar 10, 2014 | RLD: No | RS: No | Type: DISCN